FAERS Safety Report 17046359 (Version 2)
Quarter: 2022Q2

REPORT INFORMATION
  Report Type: Other
  Country: US (occurrence: None)
  Receive Date: 20191119
  Receipt Date: 20220526
  Transmission Date: 20220721
  Serious: Yes (Hospitalization)
  Sender: FDA-Public Use
  Company Number: US-ROCHE-2202391

PATIENT
  Sex: Male

DRUGS (20)
  1. CELLCEPT [Suspect]
     Active Substance: MYCOPHENOLATE MOFETIL
     Indication: Renal transplant
     Route: 048
     Dates: start: 2015
  2. CHLORTHALIDONE [Concomitant]
     Active Substance: CHLORTHALIDONE
     Dosage: 1 TABLET IN MORNING WITH FOOD ORALLY ONCE DAILY
     Route: 048
  3. LEVEMIR [Concomitant]
     Active Substance: INSULIN DETEMIR
     Route: 058
  4. METOPROLOL TARTRATE [Concomitant]
     Active Substance: METOPROLOL TARTRATE
     Dosage: ONE TABLET WITH FOOD ORALLY TWICE DAILY
     Route: 048
  5. NITROSTAT [Concomitant]
     Active Substance: NITROGLYCERIN
  6. OMEPRAZOLE [Concomitant]
     Active Substance: OMEPRAZOLE
     Route: 048
  7. POLYETHYLENE GLYCOL [Concomitant]
     Active Substance: POLYETHYLENE GLYCOL
     Dosage: POWDER 17 GM PRN
  8. FISH OIL [Concomitant]
     Active Substance: FISH OIL
     Dosage: 2 CAPS ORALLY ONCE A DAY
     Route: 048
  9. BUMETANIDE [Concomitant]
     Active Substance: BUMETANIDE
     Dosage: 1 MG TABLET TWICE A DAY AS NEEDED
     Route: 048
  10. ELIQUIS [Concomitant]
     Active Substance: APIXABAN
     Route: 048
  11. VITAMIN D3 [Concomitant]
     Active Substance: CHOLECALCIFEROL
     Dosage: 1 CAPSULE ORALLY ONCE A ADY
     Route: 048
  12. POTASSIUM CHLORIDE [Concomitant]
     Active Substance: POTASSIUM CHLORIDE
     Route: 048
  13. MAGNESIUM OXIDE [Concomitant]
     Active Substance: MAGNESIUM OXIDE
     Route: 048
  14. TACROLIMUS [Concomitant]
     Active Substance: TACROLIMUS
     Route: 048
  15. COLCRYS [Concomitant]
     Active Substance: COLCHICINE
     Route: 048
  16. OXYCODONE AND ACETAMINOPHEN [Concomitant]
     Active Substance: ACETAMINOPHEN\OXYCODONE HYDROCHLORIDE
     Dosage: 10-325 MG TABLET
     Route: 048
  17. DILTIAZEM HCL CR [Concomitant]
     Dosage: ONE CAPSULE ON AN EMPTY STOMACH IN THE MORNING ORALLY ONCE A DAY
     Route: 048
  18. ALLOPURINOL [Concomitant]
     Active Substance: ALLOPURINOL
     Route: 048
  19. VITAMIN C [Concomitant]
     Active Substance: ASCORBIC ACID
     Dosage: DAILY
  20. ZINC [Concomitant]
     Active Substance: ZINC
     Dosage: DAILY

REACTIONS (15)
  - Cardiac murmur [Unknown]
  - Atrial flutter [Unknown]
  - Pneumonia [Unknown]
  - Heart rate irregular [Unknown]
  - Rash maculo-papular [Unknown]
  - Obesity [Unknown]
  - Nocturia [Unknown]
  - Dyspnoea [Unknown]
  - Cough [Unknown]
  - Fatigue [Unknown]
  - Oedema peripheral [Unknown]
  - Scar [Unknown]
  - Hypertension [Unknown]
  - Off label use [Unknown]
  - Hypovolaemia [Unknown]
